FAERS Safety Report 8555473-X (Version None)
Quarter: 2012Q3

REPORT INFORMATION
  Report Type: 
  Country: None (occurrence: None)
  Receive Date: 20120731
  Receipt Date: 20110812
  Transmission Date: 20120928
  Serious: No
  Sender: FDA-Public Use
  Company Number: US-ASTRAZENECA-2011SE18351

PATIENT
  Age: 65 Year
  Sex: Male
  Weight: 78.9 kg

DRUGS (2)
  1. SEROQUEL XR [Suspect]
     Indication: DEPRESSION
     Route: 048
     Dates: start: 20110301, end: 20110501
  2. TOPAMAX [Concomitant]
     Indication: ALCOHOL USE

REACTIONS (6)
  - DRY THROAT [None]
  - DRY MOUTH [None]
  - OFF LABEL USE [None]
  - RASH [None]
  - ANXIETY [None]
  - COUGH [None]
